FAERS Safety Report 14105672 (Version 1)
Quarter: 2017Q4

REPORT INFORMATION
  Report Type: Report from Study
  Country: CA (occurrence: CA)
  Receive Date: 20171018
  Receipt Date: 20171018
  Transmission Date: 20180321
  Serious: Yes (Other)
  Sender: FDA-Public Use
  Company Number: CA-BIOGEN-2017BI00459522

PATIENT
  Age: 59 Year
  Sex: Female

DRUGS (1)
  1. AVONEX [Suspect]
     Active Substance: INTERFERON BETA-1A
     Indication: MULTIPLE SCLEROSIS
     Route: 030
     Dates: start: 20090701

REACTIONS (3)
  - Speech disorder [Not Recovered/Not Resolved]
  - Dysphagia [Not Recovered/Not Resolved]
  - Laryngeal cancer [Not Recovered/Not Resolved]

NARRATIVE: CASE EVENT DATE: 2014
